FAERS Safety Report 14687331 (Version 1)
Quarter: 2018Q1

REPORT INFORMATION
  Report Type: Spontaneous
  Country: GB (occurrence: GB)
  Receive Date: 20180328
  Receipt Date: 20180328
  Transmission Date: 20180509
  Serious: Yes (Other)
  Sender: FDA-Public Use
  Company Number: GB-TEVA-2018-GB-876037

PATIENT
  Age: 63 Year
  Sex: Male
  Weight: 77 kg

DRUGS (12)
  1. ATORVASTATIN [Concomitant]
     Active Substance: ATORVASTATIN
     Dosage: ONE, THEN TWO ON ALTERNATE NIGHTS FOR ONE MONTH.
  2. TERBINAFINE. [Concomitant]
     Active Substance: TERBINAFINE
     Dosage: 1 DOSAGE FORMS DAILY;
  3. CYCLIZINE [Concomitant]
     Active Substance: CYCLIZINE
     Indication: NAUSEA
     Dosage: 3 DOSAGE FORMS DAILY;
  4. CLARITHROMYCIN. [Suspect]
     Active Substance: CLARITHROMYCIN
     Route: 065
  5. COLECALCIFEROL [Concomitant]
     Active Substance: CHOLECALCIFEROL
     Dosage: DEFICIENCY IN ADULTS WEEKLY REGIME.
  6. EARCALM [Concomitant]
     Dosage: 3 DOSAGE FORMS DAILY; TO AFFECTED EARS.
     Route: 001
  7. SALBUTAMOL [Concomitant]
     Active Substance: ALBUTEROL
     Route: 055
  8. BRINZOLAMIDE [Concomitant]
     Active Substance: BRINZOLAMIDE
     Dosage: 4 GTT DAILY; 1 EACH EYE.
     Route: 050
  9. EZETIMIBE. [Concomitant]
     Active Substance: EZETIMIBE
     Dosage: 1 DOSAGE FORMS DAILY; ALONGSIDE DAILY STATIN.
  10. TIMOLOL. [Concomitant]
     Active Substance: TIMOLOL
     Dosage: 2 GTT DAILY; 1 EACH EYE.
     Route: 050
  11. GELTEARS [Concomitant]
  12. AMOXICILLIN. [Concomitant]
     Active Substance: AMOXICILLIN
     Dosage: 3 DOSAGE FORMS DAILY;

REACTIONS (2)
  - Vomiting [Recovered/Resolved]
  - Dry mouth [Unknown]
